FAERS Safety Report 7444390-4 (Version None)
Quarter: 2011Q2

REPORT INFORMATION
  Report Type: 
  Country: None (occurrence: None)
  Receive Date: 20110429
  Receipt Date: 20110415
  Transmission Date: 20111010
  Serious: Yes (Hospitalization, Other)
  Sender: FDA-Public Use
  Company Number: US-BAYER-201023412NA

PATIENT
  Age: 37 Year
  Sex: Female
  Weight: 81.633 kg

DRUGS (10)
  1. HYDROCODONE/TYLENOL [Concomitant]
     Dosage: UNK
     Route: 048
     Dates: start: 20060809
  2. WELLBUTRIN [Concomitant]
     Route: 048
  3. PHENTERMINE [Concomitant]
     Indication: WEIGHT DECREASED
     Dosage: 37.5 MG, UNK
     Route: 048
  4. NEURONTIN [Concomitant]
     Route: 048
  5. ROBAXIN [MACROGOL,METHOCARBAMOL] [Concomitant]
     Route: 048
  6. DECONSAL [CHLORPHENAMINE MALEATE,PSEUDOEPHEDRINE HYDROCHLORIDE] [Concomitant]
  7. SINGULAIR [Concomitant]
     Route: 048
  8. NASACORT AQ [Concomitant]
     Dosage: UNK
     Route: 045
  9. YASMIN [Suspect]
     Indication: CONTRACEPTION
     Dosage: UNK UNK, QD
     Route: 048
     Dates: start: 20060101, end: 20060901
  10. BISOPROLOL FUMARATE AND HYDROCHLOROTHIAZIDE [Concomitant]
     Route: 048

REACTIONS (2)
  - DEEP VEIN THROMBOSIS [None]
  - THROMBOSIS [None]
